FAERS Safety Report 4811535-1 (Version None)
Quarter: 2005Q4

REPORT INFORMATION
  Report Type: 
  Country: None (occurrence: None)
  Receive Date: 20051025
  Receipt Date: 20051010
  Transmission Date: 20060501
  Serious: Yes (Death, Hospitalization)
  Sender: FDA-Public Use
  Company Number: AZAPL200500351

PATIENT
  Age: 53 Year
  Sex: Female
  Weight: 59 kg

DRUGS (14)
  1. VIDAZA [Suspect]
     Indication: MYELODYSPLASTIC SYNDROME
     Dosage: 100 MG (DAILY X 7 DAYS), SUBCUTANEOUS
     Route: 058
     Dates: start: 20050921, end: 20050927
  2. ENCORTON (PREDNISONE ACETATE) [Concomitant]
  3. POLPRAZOL (OMEPRAZOLE) [Concomitant]
  4. DIAPREL (GLICLAZIDE) [Concomitant]
  5. HEMOROL (BENZOCAINE) [Concomitant]
  6. PROPRANOLOL [Concomitant]
  7. ENALAPRIL MALEATE [Concomitant]
  8. SPIRONOL (SPIRONOLACTONE) [Concomitant]
  9. FLUCONAZOLE [Concomitant]
  10. TRILAC (TRILAC) [Concomitant]
  11. CYCLONAMINE (ETAMSILATE) [Concomitant]
  12. POTASSIUM CHLORIDE [Concomitant]
  13. MAGNESIUM (MAGNESIUM) [Concomitant]
  14. XYLOCAINE [Concomitant]

REACTIONS (15)
  - ABDOMINAL DISTENSION [None]
  - ACUTE PULMONARY OEDEMA [None]
  - ANAEMIA [None]
  - ASTHENIA [None]
  - ATRIAL FIBRILLATION [None]
  - BLOOD GLUCOSE INCREASED [None]
  - CARDIOGENIC SHOCK [None]
  - DRUG INEFFECTIVE [None]
  - GASTROINTESTINAL HAEMORRHAGE [None]
  - GASTROINTESTINAL HYPERMOTILITY [None]
  - LEUKOPENIA [None]
  - PERIPHERAL CIRCULATORY FAILURE [None]
  - PLATELET COUNT DECREASED [None]
  - RESPIRATORY FAILURE [None]
  - SPLENOMEGALY [None]
